FAERS Safety Report 4376834-9 (Version None)
Quarter: 2004Q2

REPORT INFORMATION
  Report Type: 
  Country: None (occurrence: None)
  Receive Date: 20040609
  Receipt Date: 20040223
  Transmission Date: 20050107
  Serious: Yes (Other)
  Sender: FDA-Public Use
  Company Number: PHEH2004US02257

PATIENT
  Age: 31 Year
  Sex: Female
  Weight: 59 kg

DRUGS (2)
  1. GLEEVEC [Suspect]
     Indication: GASTROINTESTINAL STROMAL TUMOUR
     Dosage: 400MG QD ORAL
     Route: 048
     Dates: start: 20030710
  2. CONTRAST MEDIA (NO INGREDIENTS/SUBSTANCES) [Suspect]

REACTIONS (1)
  - BLOOD CREATININE INCREASED [None]
